FAERS Safety Report 8677801 (Version 10)
Quarter: 2013Q3

REPORT INFORMATION
  Report Type: Spontaneous
  Country: US (occurrence: US)
  Receive Date: 20120723
  Receipt Date: 20130704
  Transmission Date: 20140515
  Serious: Yes (Hospitalization, Other)
  Sender: FDA-Public Use
  Company Number: US-ROCHE-1056169

PATIENT
  Sex: Female
  Weight: 40.41 kg

DRUGS (2)
  1. ACCUTANE [Suspect]
     Indication: ACNE
     Route: 065
     Dates: start: 1998
  2. ACCUTANE [Suspect]
     Route: 065
     Dates: start: 200212

REACTIONS (10)
  - Deep vein thrombosis [Unknown]
  - Crohn^s disease [Unknown]
  - Colitis ulcerative [Unknown]
  - Inflammatory bowel disease [Unknown]
  - Intestinal obstruction [Unknown]
  - Large intestine polyp [Unknown]
  - Pyoderma gangrenosum [Unknown]
  - Irritable bowel syndrome [Unknown]
  - Arthritis enteropathic [Unknown]
  - Osteopenia [Unknown]
